FAERS Safety Report 20010215 (Version 1)
Quarter: 2021Q4

REPORT INFORMATION
  Report Type: Spontaneous
  Country: FR (occurrence: FR)
  Receive Date: 20211028
  Receipt Date: 20211028
  Transmission Date: 20220303
  Serious: Yes (Other)
  Sender: FDA-Public Use
  Company Number: None

PATIENT
  Age: 37 Year
  Sex: Female

DRUGS (5)
  1. ZOPICLONE [Suspect]
     Active Substance: ZOPICLONE
     Indication: Product used for unknown indication
     Dosage: 52.5 MILLIGRAM
     Route: 048
     Dates: start: 20210610, end: 20210610
  2. PREGABALIN [Suspect]
     Active Substance: PREGABALIN
     Indication: Product used for unknown indication
     Dosage: 900 MILLIGRAM
     Route: 048
     Dates: start: 20210610, end: 20210610
  3. COCAINE [Suspect]
     Active Substance: COCAINE
     Indication: Product used for unknown indication
     Dosage: INCONNUE
     Route: 065
     Dates: start: 202106, end: 202106
  4. SUBUTEX [Suspect]
     Active Substance: BUPRENORPHINE HYDROCHLORIDE
     Indication: Product substitution
     Route: 048
     Dates: start: 20210610, end: 20210610
  5. OXAZEPAM [Suspect]
     Active Substance: OXAZEPAM
     Indication: Product used for unknown indication
     Dosage: 15 DOSAGE FORM
     Route: 048
     Dates: start: 20210610, end: 20210610

REACTIONS (2)
  - Drug abuse [Not Recovered/Not Resolved]
  - Poisoning deliberate [Recovered/Resolved]

NARRATIVE: CASE EVENT DATE: 20210610
